FAERS Safety Report 10687616 (Version 1)
Quarter: 2014Q4

REPORT INFORMATION
  Report Type: Spontaneous
  Country: FR (occurrence: None)
  Receive Date: 20141230
  Receipt Date: 20141230
  Transmission Date: 20150529
  Serious: Yes (Hospitalization)
  Sender: FDA-Public Use
  Company Number: 8003201D

PATIENT
  Age: 70 Year
  Sex: Female

DRUGS (2)
  1. LEVOTHYROX [Suspect]
     Active Substance: LEVOTHYROXINE
     Indication: HYPOTHYROIDISM
     Dates: start: 201410
  2. GAVISCON?/00237601/ (SODIUM BICARBONATE, ALUMINIUM HYDROXIDE GEL, DRIED, ALGINIC ACID, SODIUM ALGINATE, MAGNESIUM TRISILICATE) [Suspect]
     Active Substance: ALGINIC ACID\ALUMINUM HYDROXIDE\MAGNESIUM TRISILICATE\SODIUM ALGINATE\SODIUM BICARBONATE
     Indication: HYPOTHYROIDISM
     Dates: start: 201410

REACTIONS (2)
  - Blood thyroid stimulating hormone increased [None]
  - Drug interaction [None]
